FAERS Safety Report 14884540 (Version 1)
Quarter: 2018Q2

REPORT INFORMATION
  Report Type: Report from Study
  Country: US (occurrence: US)
  Receive Date: 20180511
  Receipt Date: 20180511
  Transmission Date: 20180711
  Serious: Yes (Death, Other)
  Sender: FDA-Public Use
  Company Number: US-TAKEDA-2018TUS009128

PATIENT
  Age: 49 Year
  Sex: Female

DRUGS (2)
  1. PONATINIB [Suspect]
     Active Substance: PONATINIB
     Dosage: 15 MG, QD
     Route: 048
  2. PONATINIB [Suspect]
     Active Substance: PONATINIB
     Indication: ACUTE LYMPHOCYTIC LEUKAEMIA
     Dosage: 30 MG, QD
     Route: 048
     Dates: start: 201710

REACTIONS (9)
  - Death [Fatal]
  - Hypoaesthesia [Unknown]
  - Pancytopenia [Recovered/Resolved]
  - Blister [Unknown]
  - Anxiety [Unknown]
  - Anal abscess [Unknown]
  - Secondary adrenocortical insufficiency [Unknown]
  - Pneumonia [Unknown]
  - Neuropathy peripheral [Unknown]

NARRATIVE: CASE EVENT DATE: 20180421
